FAERS Safety Report 24153732 (Version 1)
Quarter: 2024Q3

REPORT INFORMATION
  Report Type: Spontaneous
  Country: FR (occurrence: FR)
  Receive Date: 20240730
  Receipt Date: 20240730
  Transmission Date: 20241017
  Serious: Yes (Hospitalization)
  Sender: MERCK
  Company Number: FR-MERCK-0703FRA00100

PATIENT
  Age: 57 Year
  Sex: Female

DRUGS (9)
  1. EMEND [Suspect]
     Active Substance: APREPITANT
     Indication: Prophylaxis of nausea and vomiting
     Dosage: 125 MG, QD
     Route: 048
  2. EMEND [Suspect]
     Active Substance: APREPITANT
     Dosage: 80 MG, QD
     Route: 048
  3. IFOSFAMIDE [Interacting]
     Active Substance: IFOSFAMIDE
     Indication: Osteosarcoma metastatic
     Dosage: 2500 MG/M2, UNK
     Route: 042
  4. IFOSFAMIDE [Interacting]
     Active Substance: IFOSFAMIDE
     Dosage: 2500 MG/M2, UNK
     Route: 042
  5. DOXORUBICIN [Concomitant]
     Active Substance: DOXORUBICIN
     Indication: Osteosarcoma metastatic
     Dosage: 30 MG/M2, UNK
     Route: 042
  6. DOXORUBICIN [Concomitant]
     Active Substance: DOXORUBICIN
     Dosage: 30 MG/M2, UNK
     Route: 041
  7. ONDANSETRON [Concomitant]
     Active Substance: ONDANSETRON
     Indication: Prophylaxis of nausea and vomiting
     Dosage: 8 MG, UNK
     Route: 042
  8. METHYLPREDNISOLONE [Concomitant]
     Active Substance: METHYLPREDNISOLONE
     Indication: Prophylaxis of nausea and vomiting
     Dosage: 60 MG, UNK
     Route: 042
  9. CISPLATIN [Concomitant]
     Active Substance: CISPLATIN
     Indication: Osteosarcoma metastatic
     Dosage: UNK MG/M2, UNK
     Route: 041

REACTIONS (4)
  - Encephalopathy [Recovered/Resolved]
  - Encephalopathy [Recovered/Resolved]
  - Drug interaction [Recovered/Resolved]
  - Drug interaction [Recovered/Resolved]
